FAERS Safety Report 24845399 (Version 3)
Quarter: 2025Q1

REPORT INFORMATION
  Report Type: Spontaneous
  Country: US (occurrence: US)
  Receive Date: 20250115
  Receipt Date: 20250218
  Transmission Date: 20250409
  Serious: Yes (Other)
  Sender: AMGEN
  Company Number: US-AMGEN-USASP2025003926

PATIENT
  Age: 66 Year
  Sex: Female

DRUGS (3)
  1. EVENITY [Suspect]
     Active Substance: ROMOSOZUMAB-AQQG
     Indication: Product used for unknown indication
     Dosage: UNK, QMO
     Route: 065
     Dates: start: 2024
  2. EUTHYROX [Concomitant]
     Active Substance: LEVOTHYROXINE SODIUM
     Indication: Hypothyroidism
     Route: 065
  3. MOXIFLOXACIN;PREDNISOLONE [Concomitant]
     Dosage: 1 DROP, TID
     Route: 065

REACTIONS (7)
  - Blindness transient [Recovered/Resolved]
  - Cataract [Unknown]
  - Posterior capsule opacification [Unknown]
  - Pain in extremity [Unknown]
  - Angiopathy [Unknown]
  - Macular scar [Unknown]
  - Kaleidoscope vision [Unknown]

NARRATIVE: CASE EVENT DATE: 20240101
